FAERS Safety Report 7013986-6 (Version None)
Quarter: 2010Q3

REPORT INFORMATION
  Report Type: 
  Country: None (occurrence: None)
  Receive Date: 20100926
  Receipt Date: 20100921
  Transmission Date: 20110219
  Serious: Yes (Other)
  Sender: FDA-Public Use
  Company Number: IT-BRISTOL-MYERS SQUIBB COMPANY-15300080

PATIENT
  Sex: Male

DRUGS (1)
  1. ENTECAVIR [Suspect]

REACTIONS (1)
  - MYALGIA [None]
